FAERS Safety Report 18373894 (Version 2)
Quarter: 2020Q4

REPORT INFORMATION
  Report Type: Spontaneous
  Country: US (occurrence: US)
  Receive Date: 20201012
  Receipt Date: 20201019
  Transmission Date: 20210114
  Serious: No
  Sender: FDA-Public Use
  Company Number: US-ELI_LILLY_AND_COMPANY-US202010002460

PATIENT
  Age: 54 Year
  Sex: Male
  Weight: 95.25 kg

DRUGS (4)
  1. CIALIS [Suspect]
     Active Substance: TADALAFIL
     Indication: RADICAL PROSTATECTOMY
  2. LISINOPRIL. [Concomitant]
     Active Substance: LISINOPRIL
     Indication: BLOOD PRESSURE MEASUREMENT
     Dosage: 20 MG, DAILY
     Route: 065
  3. CIALIS [Suspect]
     Active Substance: TADALAFIL
     Indication: VASECTOMY
     Dosage: 5 MG, DAILY
     Route: 048
     Dates: start: 20201003, end: 20201005
  4. CIALIS [Suspect]
     Active Substance: TADALAFIL
     Indication: ERECTILE DYSFUNCTION

REACTIONS (5)
  - Vision blurred [Not Recovered/Not Resolved]
  - Nausea [Unknown]
  - Abdominal discomfort [Recovered/Resolved]
  - Headache [Not Recovered/Not Resolved]
  - Illness [Unknown]

NARRATIVE: CASE EVENT DATE: 20201003
